FAERS Safety Report 4708690-0 (Version None)
Quarter: 2005Q3

REPORT INFORMATION
  Report Type: 
  Country: None (occurrence: None)
  Receive Date: 20050706
  Receipt Date: 20050627
  Transmission Date: 20060218
  Serious: Yes (Hospitalization)
  Sender: FDA-Public Use
  Company Number: 2005US-00567

PATIENT
  Sex: Female

DRUGS (1)
  1. CIPROFLOXACIN [Suspect]
     Indication: ARTHROPOD BITE

REACTIONS (4)
  - CHOREA [None]
  - CONFUSIONAL STATE [None]
  - DYSKINESIA [None]
  - GRAND MAL CONVULSION [None]
